FAERS Safety Report 7688211-3 (Version None)
Quarter: 2011Q3

REPORT INFORMATION
  Report Type: 
  Country: None (occurrence: None)
  Receive Date: 20110817
  Receipt Date: 20110607
  Transmission Date: 20111222
  Serious: No
  Sender: FDA-Public Use
  Company Number: US-GLAXOSMITHKLINE-A0930641A

PATIENT
  Sex: Male
  Weight: 88.2 kg

DRUGS (1)
  1. VOTRIENT [Suspect]
     Indication: PRODUCT USED FOR UNKNOWN INDICATION
     Dosage: 800MGD PER DAY
     Route: 048
     Dates: start: 20110430, end: 20110607

REACTIONS (1)
  - VOMITING [None]
